FAERS Safety Report 8409618-2 (Version None)
Quarter: 2012Q2

REPORT INFORMATION
  Report Type: 
  Country: None (occurrence: None)
  Receive Date: 20120529
  Receipt Date: 20120308
  Transmission Date: 20120825
  Serious: No
  Sender: FDA-Public Use
  Company Number: 2012-00084

PATIENT
  Age: 71 Year
  Sex: Male
  Weight: 87.5442 kg

DRUGS (7)
  1. ZICAM ULTRA COLD REMEDY RAPIDMELTS [Suspect]
     Indication: NASOPHARYNGITIS
     Dosage: 1 RAPIDMELT EVERY THREE HOURS
     Dates: start: 20120303, end: 20120307
  2. VYTORIN [Concomitant]
  3. VITAMIN D [Concomitant]
  4. ASPIRIN [Concomitant]
  5. AMLODIPINE [Concomitant]
  6. OMEPRAZOLE [Concomitant]
  7. BENAZEPRIL/HCTZ [Concomitant]

REACTIONS (4)
  - TREMOR [None]
  - HEADACHE [None]
  - DYSGEUSIA [None]
  - AGEUSIA [None]
